FAERS Safety Report 7146103-2 (Version None)
Quarter: 2010Q4

REPORT INFORMATION
  Report Type: 
  Country: None (occurrence: None)
  Receive Date: 20101208
  Receipt Date: 20101201
  Transmission Date: 20110411
  Serious: Yes (Hospitalization)
  Sender: FDA-Public Use
  Company Number: US-MERCK-1011USA01668

PATIENT
  Age: 59 Year
  Sex: Male
  Weight: 81 kg

DRUGS (4)
  1. EMEND [Suspect]
     Indication: PROPHYLAXIS OF NAUSEA AND VOMITING
     Route: 048
     Dates: start: 20101110
  2. ALOXI [Suspect]
     Indication: NAUSEA
     Route: 042
     Dates: start: 20101104, end: 20101104
  3. DECADRON PHOSPHATE [Suspect]
     Indication: NAUSEA
     Route: 042
     Dates: start: 20101104, end: 20101104
  4. IVEMEND [Suspect]
     Indication: NAUSEA
     Route: 042
     Dates: start: 20101104, end: 20101104

REACTIONS (6)
  - ADVERSE EVENT [None]
  - ANXIETY [None]
  - BACK PAIN [None]
  - DYSPNOEA [None]
  - MALAISE [None]
  - PAIN IN EXTREMITY [None]
